FAERS Safety Report 17635970 (Version 2)
Quarter: 2020Q2

REPORT INFORMATION
  Report Type: Spontaneous
  Country: US (occurrence: US)
  Receive Date: 20200407
  Receipt Date: 20200423
  Transmission Date: 20200713
  Serious: No
  Sender: FDA-Public Use
  Company Number: US-SAGE-2020SAGE000032

PATIENT

DRUGS (2)
  1. ZULRESSO [Suspect]
     Active Substance: BREXANOLONE
     Dosage: 90 MCG/KG/HR
     Route: 042
     Dates: start: 20200328, end: 20200402
  2. ZULRESSO [Suspect]
     Active Substance: BREXANOLONE
     Indication: SEIZURE
     Dosage: 5100 UG, SINGLE
     Route: 042
     Dates: start: 20200328, end: 20200328

REACTIONS (2)
  - Off label use [Recovered/Resolved]
  - Product administration error [Recovered/Resolved]

NARRATIVE: CASE EVENT DATE: 20200328
